FAERS Safety Report 13781137 (Version 5)
Quarter: 2018Q2

REPORT INFORMATION
  Report Type: Spontaneous
  Country: US (occurrence: US)
  Receive Date: 20170724
  Receipt Date: 20180508
  Transmission Date: 20180711
  Serious: No
  Sender: FDA-Public Use
  Company Number: US-AMGEN-USASP2017109671

PATIENT
  Sex: Female

DRUGS (2)
  1. ENBREL [Suspect]
     Active Substance: ETANERCEPT
     Indication: RHEUMATOID ARTHRITIS
     Dosage: 50 MG, QWK
     Route: 058
     Dates: end: 20170611
  2. XELJANZ XR [Concomitant]
     Active Substance: TOFACITINIB CITRATE
     Indication: RHEUMATOID ARTHRITIS
     Dosage: 11 MG, QD
     Route: 048

REACTIONS (12)
  - Drug effect decreased [Unknown]
  - Joint swelling [Unknown]
  - Tenderness [Unknown]
  - Arthropathy [Unknown]
  - Back pain [Unknown]
  - Pelvic pain [Unknown]
  - Musculoskeletal stiffness [Recovered/Resolved]
  - Injection site pain [Not Recovered/Not Resolved]
  - Fatigue [Unknown]
  - Peripheral swelling [Unknown]
  - Sleep disorder due to a general medical condition [Unknown]
  - Arthralgia [Unknown]
